FAERS Safety Report 9722907 (Version 1)
Quarter: 2013Q4

REPORT INFORMATION
  Report Type: Spontaneous
  Country: US (occurrence: None)
  Receive Date: 20131126
  Receipt Date: 20131126
  Transmission Date: 20140711
  Serious: Yes (Hospitalization)
  Sender: FDA-Public Use
  Company Number: SYM-2013-13227

PATIENT
  Age: 75 Year
  Sex: Female

DRUGS (1)
  1. XENAZINE (25 MILLIGRAM, TABLET) (TETRABENAZINE, TETRABENAZINE)? [Suspect]
     Indication: TORTICOLLIS
     Dosage: 25 MG, 3 IN 1 D, ORAL
     Route: 048
     Dates: start: 20101022

REACTIONS (2)
  - Fluid retention [None]
  - Renal impairment [None]
